FAERS Safety Report 9967050 (Version 1)
Quarter: 2014Q1

REPORT INFORMATION
  Report Type: Report from Study
  Country: US (occurrence: US)
  Receive Date: 20140305
  Receipt Date: 20140305
  Transmission Date: 20141002
  Serious: Yes (Other)
  Sender: FDA-Public Use
  Company Number: US-ASTRAZENECA-2014SE13207

PATIENT
  Sex: Male

DRUGS (5)
  1. CRESTOR [Suspect]
     Indication: CEREBROVASCULAR ACCIDENT
     Route: 048
     Dates: start: 20100125
  2. ASPIRIN [Suspect]
     Route: 048
  3. CLOPIDOGREL [Suspect]
  4. DIOVAN [Suspect]
     Indication: BLOOD PRESSURE
  5. NIASPAN [Suspect]
     Indication: BLOOD PRESSURE

REACTIONS (2)
  - Renal failure [Recovered/Resolved]
  - Rhabdomyolysis [Unknown]
